FAERS Safety Report 8430747-1 (Version None)
Quarter: 2012Q2

REPORT INFORMATION
  Report Type: 
  Country: None (occurrence: None)
  Receive Date: 20120612
  Receipt Date: 20120606
  Transmission Date: 20120825
  Serious: Yes (Hospitalization)
  Sender: FDA-Public Use
  Company Number: AR-ROCHE-1042899

PATIENT
  Sex: Female

DRUGS (3)
  1. CALCIUM [Concomitant]
  2. LUCENTIS [Suspect]
     Route: 050
     Dates: start: 20110901
  3. LUCENTIS [Suspect]
     Indication: MACULOPATHY
     Dosage: THREE AMPOULES
     Route: 050
     Dates: start: 20110601

REACTIONS (4)
  - FALL [None]
  - DRUG EFFECT DECREASED [None]
  - HIP FRACTURE [None]
  - VISUAL IMPAIRMENT [None]
